FAERS Safety Report 9095695 (Version 7)
Quarter: 2013Q2

REPORT INFORMATION
  Report Type: Spontaneous
  Country: US (occurrence: US)
  Receive Date: 20130220
  Receipt Date: 20130508
  Transmission Date: 20140414
  Serious: No
  Sender: FDA-Public Use
  Company Number: US-009507513-1302USA003386

PATIENT
  Age: 28 Year
  Sex: Female

DRUGS (2)
  1. IMPLANON [Suspect]
     Indication: CONTRACEPTION
     Dosage: 1 DF, UNK
     Route: 059
     Dates: start: 200911, end: 20130131
  2. IMPLANON [Suspect]
     Dosage: 1 DF, UNK
     Route: 059

REACTIONS (5)
  - Discomfort [Unknown]
  - Pain [Unknown]
  - Medical device complication [Unknown]
  - Incorrect drug administration duration [Unknown]
  - Overdose [Unknown]
